FAERS Safety Report 9013003 (Version 2)
Quarter: 2013Q1

REPORT INFORMATION
  Report Type: Spontaneous
  Country: DE (occurrence: DE)
  Receive Date: 20130114
  Receipt Date: 20130311
  Transmission Date: 20140127
  Serious: Yes (Hospitalization)
  Sender: FDA-Public Use
  Company Number: DE-AMGEN-DEUSP2013002218

PATIENT
  Age: 50 Year
  Sex: Female

DRUGS (4)
  1. ENBREL [Suspect]
     Indication: PSORIATIC ARTHROPATHY
     Dosage: 50 MG, WEEKLY
     Dates: start: 2009, end: 201212
  2. ENBREL [Suspect]
     Indication: RHEUMATOID ARTHRITIS
  3. AZULFIDINE [Concomitant]
     Dosage: DAILY
  4. ARCOXIA [Concomitant]
     Indication: PAIN
     Dosage: AS NECESSARY

REACTIONS (13)
  - Encephalomyelitis [Unknown]
  - Peripheral sensory neuropathy [Unknown]
  - Hypoaesthesia [Unknown]
  - Hemiparesis [Unknown]
  - Eating disorder [Unknown]
  - Tinnitus [Unknown]
  - Irritable bowel syndrome [Unknown]
  - Nystagmus [Unknown]
  - Thermal burn [Unknown]
  - Mobility decreased [Unknown]
  - Back pain [Unknown]
  - Pain in extremity [Unknown]
  - Demyelination [Unknown]
